FAERS Safety Report 17867823 (Version 16)
Quarter: 2022Q1

REPORT INFORMATION
  Report Type: Spontaneous
  Country: GB (occurrence: GB)
  Receive Date: 20200606
  Receipt Date: 20220211
  Transmission Date: 20220424
  Serious: Yes (Other)
  Sender: FDA-Public Use
  Company Number: GB-AUROBINDO-AUR-APL-2020-026376

PATIENT
  Age: 58 Year
  Sex: Male
  Weight: 91 kg

DRUGS (32)
  1. LAMIVUDINE [Suspect]
     Active Substance: LAMIVUDINE
     Indication: Product used for unknown indication
     Dosage: 300 MILLIGRAM, ONCE A DAY (300 MILLIGRAM, QD)
     Route: 065
  2. LAMIVUDINE [Suspect]
     Active Substance: LAMIVUDINE
     Dosage: 1 DOSAGE FORM, ONCE A DAY (1 DOSAGE FORM, QD)
     Route: 048
  3. NEVIRAPINE [Suspect]
     Active Substance: NEVIRAPINE
     Indication: Product used for unknown indication
     Dosage: 200 MILLIGRAM, ONCE A DAY (200 MILLIGRAM QD)
     Route: 065
  4. NEVIRAPINE [Suspect]
     Active Substance: NEVIRAPINE
     Dosage: 1 DOSAGE FORM, ONCE A DAY (1 DOSAGE FORM, QD, STRENGTH: 200 (UNITS NOT PROVIDED))
     Route: 065
  5. ISENTRESS [Suspect]
     Active Substance: RALTEGRAVIR POTASSIUM
     Indication: Product used for unknown indication
     Dosage: 400 MILLIGRAM, ONCE A DAY (400 MILLIGRAM, QD)
     Route: 048
  6. ISENTRESS [Suspect]
     Active Substance: RALTEGRAVIR POTASSIUM
     Dosage: 2 DOSAGE FORM, ONCE A DAY (2 DOSAGE FORM, QD)
     Route: 065
  7. ISENTRESS [Suspect]
     Active Substance: RALTEGRAVIR POTASSIUM
     Dosage: 1 DOSAGE FORM, ONCE A DAY (1DOSAGE FORM QD, STRENGTH: 400
     Route: 048
  8. ISENTRESS [Suspect]
     Active Substance: RALTEGRAVIR POTASSIUM
     Indication: Product used for unknown indication
     Dosage: 2 DOSAGE FORM, ONCE A DAY
     Route: 065
  9. RALTEGRAVIR [Suspect]
     Active Substance: RALTEGRAVIR
     Indication: Product used for unknown indication
     Dosage: 1 DOSAGE FORM, ONCE A DAY
     Route: 065
  10. RALTEGRAVIR [Suspect]
     Active Substance: RALTEGRAVIR
     Dosage: 2 DOSAGE FORM, ONCE A DAY(BID (2 DF, QD))
     Route: 065
  11. RALTEGRAVIR [Suspect]
     Active Substance: RALTEGRAVIR
     Dosage: 2 DOSAGE FORM, ONCE A DAY
     Route: 048
  12. RALTEGRAVIR [Suspect]
     Active Substance: RALTEGRAVIR
     Indication: Product used for unknown indication
     Dosage: 400 MILLIGRAM, ONCE A DAY
     Route: 048
  13. RALTEGRAVIR [Suspect]
     Active Substance: RALTEGRAVIR
     Dosage: UNK, BID (UNK, BID (2 DF, QD) )
     Route: 065
  14. RALTEGRAVIR [Suspect]
     Active Substance: RALTEGRAVIR
     Dosage: 2 DOSAGE FORM, ONCE A DAY
     Route: 048
  15. RALTEGRAVIR [Suspect]
     Active Substance: RALTEGRAVIR
     Dosage: 4 DOSAGE FORM, ONCE A DAY
     Route: 048
  16. RALTEGRAVIR [Suspect]
     Active Substance: RALTEGRAVIR
     Dosage: 1 DOSAGE FORM
     Route: 048
  17. RALTEGRAVIR [Suspect]
     Active Substance: RALTEGRAVIR
     Dosage: 1 DOSAGE FORM, ONCE A DAY
     Route: 048
  18. RALTEGRAVIR [Suspect]
     Active Substance: RALTEGRAVIR
     Dosage: UNK, ONCE A DAY, 2 DOSE QD(UNK UNK, BID)
     Route: 048
  19. RALTEGRAVIR [Suspect]
     Active Substance: RALTEGRAVIR
     Dosage: 2 DOSAGE FORM, ONCE A DAY, 2 DOSAGE FORM, QD (2 ANTI-XA IU/ML, QD)
     Route: 065
  20. RALTEGRAVIR [Suspect]
     Active Substance: RALTEGRAVIR
     Dosage: 400 MILLIGRAM, ONCE A DAY, 400 MILLIGRAM, QD (1 ANTI-XA IU/ML, QD)
     Route: 065
  21. RALTEGRAVIR POTASSIUM [Suspect]
     Active Substance: RALTEGRAVIR POTASSIUM
     Indication: Product used for unknown indication
     Dosage: 4 DOSAGE FORM, ONCE A DAY
     Route: 065
  22. RALTEGRAVIR POTASSIUM [Suspect]
     Active Substance: RALTEGRAVIR POTASSIUM
     Dosage: 1 DOSAGE FORM, ONCE A DAY(1 DOSAGE FORM, QD, STRENGTH: 400 ONCE DAILY)
     Route: 048
  23. RALTEGRAVIR POTASSIUM [Suspect]
     Active Substance: RALTEGRAVIR POTASSIUM
     Dosage: 2 DOSAGE FORM, ONCE A DAY ((2 ANTI-XA IU/ML, QD))
     Route: 048
  24. RALTEGRAVIR POTASSIUM [Suspect]
     Active Substance: RALTEGRAVIR POTASSIUM
     Dosage: 400 MILLIGRAM, ONCE A DAY
     Route: 048
  25. VIRAMUNE [Suspect]
     Active Substance: NEVIRAPINE
     Indication: Product used for unknown indication
     Dosage: 200 MILLIGRAM, ONCE A DAY
     Route: 065
  26. VIRAMUNE [Suspect]
     Active Substance: NEVIRAPINE
     Dosage: 1 DOSAGE FORM, ONCE A DAY
     Route: 048
  27. VIRAMUNE [Suspect]
     Active Substance: NEVIRAPINE
     Dosage: 200 MILLIGRAM, ONCE A DAY
     Route: 048
  28. VIRAMUNE [Suspect]
     Active Substance: NEVIRAPINE
     Dosage: 1 DOSAGE FORM, ONCE A DAY
     Route: 065
  29. LAMIVUDINE [Suspect]
     Active Substance: LAMIVUDINE
     Indication: Product used for unknown indication
     Dosage: 1 DOSAGE FORM, ONCE A DAY
     Route: 065
  30. LAMIVUDINE [Suspect]
     Active Substance: LAMIVUDINE
     Dosage: 300 MILLIGRAM, ONCE A DAY
     Route: 048
  31. LAMIVUDINE [Suspect]
     Active Substance: LAMIVUDINE
     Dosage: 1 DOSAGE FORM, ONCE A DAY(1 DOSAGE FORM, QD ORAL; STRENGTH: 300 (UNITS NOT PROVIDED.)
     Route: 048
  32. LAMIVUDINE [Suspect]
     Active Substance: LAMIVUDINE
     Dosage: STRENGTH: 300MG  ONCE A DAY
     Route: 065

REACTIONS (8)
  - Suspected COVID-19 [Unknown]
  - Hallucination [Unknown]
  - Delirium [Unknown]
  - Fatigue [Unknown]
  - Cough [Unknown]
  - Asthenia [Unknown]
  - Malaise [Unknown]
  - Pyrexia [Unknown]

NARRATIVE: CASE EVENT DATE: 20200101
